FAERS Safety Report 11993026 (Version 1)
Quarter: 2016Q1

REPORT INFORMATION
  Report Type: Spontaneous
  Country: ES (occurrence: ES)
  Receive Date: 20160203
  Receipt Date: 20160203
  Transmission Date: 20160526
  Serious: Yes (Hospitalization)
  Sender: FDA-Public Use
  Company Number: ES-ZYDUS-010103

PATIENT
  Age: 53 Year
  Sex: Female

DRUGS (3)
  1. CARBIDOPA/LEVODOPA [Concomitant]
     Indication: PARKINSON^S DISEASE
     Dosage: 25/100, 1 TABLET EVERY 8 HOURS
  2. PRAMIPEXOLE/PRAMIPEXOLE DIHYDROCHLORIDE [Suspect]
     Active Substance: PRAMIPEXOLE DIHYDROCHLORIDE
     Indication: PARKINSON^S DISEASE
     Dosage: 2,1 MG  1 CP PER DAY.
  3. LETROZOLE. [Concomitant]
     Active Substance: LETROZOLE
     Indication: NEOPLASM
     Dosage: 2.5 MG, 1TABLET PER DAY, FOR

REACTIONS (1)
  - Jealous delusion [Recovered/Resolved]
